FAERS Safety Report 5176322-6 (Version None)
Quarter: 2006Q4

REPORT INFORMATION
  Report Type: 
  Country: None (occurrence: None)
  Receive Date: 20061207
  Receipt Date: 20061107
  Transmission Date: 20070319
  Serious: Yes (Life-Threatening, Hospitalization)
  Sender: FDA-Public Use
  Company Number: 2006-02900

PATIENT
  Age: 52 Year
  Sex: Male

DRUGS (6)
  1. VELCADE [Suspect]
     Indication: MANTLE CELL LYMPHOMA
     Dosage: 1.30 MG/M2, UNK; INTRAVENOUS
     Route: 042
     Dates: start: 20060731, end: 20061102
  2. RITUXIMAB (RITUXIMAB) INJECTION, 375MG/M2 [Suspect]
     Indication: MANTLE CELL LYMPHOMA
     Dates: start: 20060731, end: 20061102
  3. CYCLOPHOSPHAMIDE [Suspect]
     Indication: MANTLE CELL LYMPHOMA
     Dates: start: 20060731, end: 20061102
  4. ANDRIAMYCIN (DOXORUBICIN) VIAL [Suspect]
     Indication: MANTLE CELL LYMPHOMA
     Dates: start: 20060731, end: 20061102
  5. VINCRISTINE [Suspect]
     Indication: MANTLE CELL LYMPHOMA
     Dates: start: 20060731, end: 20061102
  6. PREDNISONE [Suspect]
     Indication: MANTLE CELL LYMPHOMA
     Dates: start: 20060731, end: 20061102

REACTIONS (2)
  - HAEMOGLOBIN DECREASED [None]
  - RENAL FAILURE [None]
